FAERS Safety Report 25776179 (Version 1)
Quarter: 2025Q3

REPORT INFORMATION
  Report Type: Spontaneous
  Country: US (occurrence: US)
  Receive Date: 20250909
  Receipt Date: 20250909
  Transmission Date: 20251020
  Serious: No
  Sender: DOMPE FARMACEUTICI
  Company Number: US-FARMAPROD-202408-2951

PATIENT
  Sex: Male

DRUGS (14)
  1. OXERVATE [Suspect]
     Active Substance: CENEGERMIN-BKBJ
     Indication: Neurotrophic keratopathy
     Route: 047
     Dates: start: 20240805
  2. VITAMIN B12 [Concomitant]
     Active Substance: CYANOCOBALAMIN
  3. TRAZODONE HCL [Concomitant]
     Active Substance: TRAZODONE HYDROCHLORIDE
  4. ANDROGEL [Concomitant]
     Active Substance: TESTOSTERONE
  5. MAXALT [Concomitant]
     Active Substance: RIZATRIPTAN BENZOATE
  6. LYRICA [Concomitant]
     Active Substance: PREGABALIN
  7. PREDNISONE [Concomitant]
     Active Substance: PREDNISONE
  8. OXYCODONE HYDROCHLORIDE [Concomitant]
     Active Substance: OXYCODONE HYDROCHLORIDE
  9. NALOXONE HCL [Concomitant]
     Active Substance: NALOXONE HYDROCHLORIDE
  10. METHADONE HYDROCHLORIDE [Concomitant]
     Active Substance: METHADONE HYDROCHLORIDE
  11. HYDROXYZINE PAMOATE [Concomitant]
     Active Substance: HYDROXYZINE PAMOATE
  12. FLUOXETINE HYDROCHLORIDE [Concomitant]
     Active Substance: FLUOXETINE HYDROCHLORIDE
  13. EPIPEN [Concomitant]
     Active Substance: EPINEPHRINE
  14. BUSPIRONE HCL [Concomitant]
     Active Substance: BUSPIRONE HYDROCHLORIDE

REACTIONS (1)
  - Inappropriate schedule of product administration [Unknown]
